FAERS Safety Report 6238385-6 (Version None)
Quarter: 2009Q2

REPORT INFORMATION
  Report Type: 
  Country: None (occurrence: None)
  Receive Date: 20090622
  Receipt Date: 20090612
  Transmission Date: 20091009
  Serious: Yes (Hospitalization)
  Sender: FDA-Public Use
  Company Number: DE-BIOGENIDEC-2009BI012796

PATIENT
  Age: 57 Year
  Sex: Female

DRUGS (5)
  1. AVONEX [Suspect]
     Indication: RELAPSING-REMITTING MULTIPLE SCLEROSIS
     Route: 030
     Dates: start: 20080301
  2. NEBILET [Concomitant]
     Indication: HYPERTENSION
     Route: 048
  3. L-THYROXIN [Concomitant]
     Indication: HYPOTHYROIDISM
     Route: 048
  4. SIMVASTATIN [Concomitant]
     Indication: DRUG USE FOR UNKNOWN INDICATION
     Route: 048
  5. PLASTULEN [Concomitant]
     Indication: ANAEMIA
     Route: 048
     Dates: start: 20090221

REACTIONS (2)
  - BREAST CANCER [None]
  - MASTECTOMY [None]
